FAERS Safety Report 8488784-7 (Version None)
Quarter: 2012Q3

REPORT INFORMATION
  Report Type: 
  Country: None (occurrence: None)
  Receive Date: 20120705
  Receipt Date: 20120627
  Transmission Date: 20120928
  Serious: Yes (Death, Other)
  Sender: FDA-Public Use
  Company Number: US-UCBSA-055089

PATIENT
  Sex: Female

DRUGS (21)
  1. OMEPRAZOLE [Concomitant]
  2. VYTORIN [Concomitant]
  3. FOLIC ACID [Concomitant]
  4. NASONEX [Concomitant]
  5. PROTONIX [Concomitant]
  6. METHOTREXATE SODIUM [Concomitant]
     Dosage: 2.5 MG TABLET TAKE 7 TABLETS
     Route: 048
  7. FOSAMAX [Concomitant]
     Dosage: 35 MG
  8. PROVENTIL [Concomitant]
  9. DILTIAZEM HCL [Concomitant]
  10. LEVOTHYROXINE SODIUM [Concomitant]
     Dosage: 0.05 MG
  11. ALBUTEROL [Concomitant]
  12. PULMICORT [Concomitant]
     Dosage: TURBUHALER
  13. CARDIZEM [Concomitant]
  14. FOLIC ACID [Concomitant]
     Dosage: 1 MG TABLETS TAKE 2 TABLETS  DAILY
     Route: 048
  15. COMBIVENT [Concomitant]
     Dosage: INHALER
  16. SINGULAIR [Concomitant]
  17. ZYRTEC [Concomitant]
  18. CITRACAL [Concomitant]
  19. CIMZIA [Suspect]
     Indication: RHEUMATOID ARTHRITIS
     Dates: start: 20100406, end: 20120127
  20. PREDNISONE [Concomitant]
     Dosage: 2.5 MG TABLET 2 TABLETS
  21. AMOXICILLIN [Concomitant]
     Dosage: 500 MG CAPSULES

REACTIONS (3)
  - ADENOCARCINOMA [None]
  - PNEUMONIA [None]
  - OSTEOPOROSIS POSTMENOPAUSAL [None]
